FAERS Safety Report 10248511 (Version 2)
Quarter: 2014Q2

REPORT INFORMATION
  Report Type: Report from Study
  Country: DE (occurrence: DE)
  Receive Date: 20140620
  Receipt Date: 20140620
  Transmission Date: 20141212
  Serious: Yes (Life-Threatening, Hospitalization)
  Sender: FDA-Public Use
  Company Number: DE-ROCHE-1069368

PATIENT
  Age: 73 Year
  Sex: Female
  Weight: 62 kg

DRUGS (23)
  1. RITUXIMAB [Suspect]
     Indication: B-CELL LYMPHOMA
     Dosage: ON 08/MAY/2012 PATIENT RECEIVED LAST DOSE PRIOR TO SAE: 615 MG/ML 375 ML
     Route: 042
     Dates: start: 20120306
  2. CYCLOPHOSPHAMIDE [Suspect]
     Indication: B-CELL LYMPHOMA
     Dosage: LAST DOSE OF CYCLOPHOSPHAMIDE RECEIVED ON 08/MAY/2012 PRIOR TO SAE: 1200 MG
     Route: 042
     Dates: start: 20120306
  3. DOXORUBICIN [Suspect]
     Indication: B-CELL LYMPHOMA
     Dosage: LAST DOSE OF DOXORUBICIN TAKEN ON 08/MAY/2012 PRIOR TO SAE: 82 MG
     Route: 042
     Dates: start: 20120306
  4. VINCRISTINE [Suspect]
     Indication: B-CELL LYMPHOMA
     Dosage: MOST RECENT DOSE OF VINCRISTINE WAS TAKEN ON 08/MAY/2012: 2 MG
     Route: 040
     Dates: start: 20120306
  5. PREDNISONE [Suspect]
     Indication: B-CELL LYMPHOMA
     Dosage: MOST RECENT DOSE OF PREDNISONE WAS TAKEN ON 12/MAY/2012 PRIOR TO SAE: 100 MG
     Route: 048
     Dates: start: 20120307
  6. PANTOZOL (GERMANY) [Concomitant]
     Indication: DYSPEPSIA
     Route: 065
     Dates: start: 20120306
  7. PARACETAMOL [Concomitant]
     Indication: PYREXIA
     Route: 065
     Dates: start: 20120306
  8. UROMITEXAN [Concomitant]
     Route: 065
     Dates: start: 20120306
  9. GRANISETRON [Concomitant]
     Indication: PREMEDICATION
     Route: 065
     Dates: start: 20120206, end: 20120619
  10. EMEND [Concomitant]
     Indication: VOMITING
     Route: 065
     Dates: start: 20120306, end: 20120621
  11. NOVALGIN (GERMANY) [Concomitant]
     Indication: BONE PAIN
     Route: 065
     Dates: start: 20120509
  12. IBUPROFEN [Concomitant]
     Indication: BONE PAIN
     Route: 065
     Dates: start: 20120515
  13. ACICLOVIR [Concomitant]
     Indication: HERPES ZOSTER
     Route: 065
     Dates: start: 20120714
  14. RANITIDIN [Concomitant]
     Route: 065
     Dates: start: 20120306, end: 20120821
  15. PREDNISOLON [Concomitant]
     Route: 065
     Dates: start: 20120306, end: 20120821
  16. CALCILAC (GERMANY) [Concomitant]
     Indication: HYPERTHYROIDISM
     Route: 065
     Dates: start: 20120608
  17. NEULASTA [Concomitant]
     Route: 065
     Dates: start: 20120420, end: 20120420
  18. NEULASTA [Concomitant]
     Route: 065
     Dates: start: 20120511, end: 20120511
  19. NEULASTA [Concomitant]
     Route: 065
     Dates: start: 20120531, end: 20120531
  20. NEULASTA [Concomitant]
     Route: 065
     Dates: start: 20120621, end: 20120621
  21. ZOMETA [Concomitant]
     Route: 065
     Dates: start: 20120724, end: 20120724
  22. ZOMETA [Concomitant]
     Route: 065
     Dates: start: 20120628, end: 20120628
  23. IRENAT [Concomitant]
     Route: 065
     Dates: start: 20121001, end: 20121008

REACTIONS (4)
  - Neutropenia [Recovered/Resolved]
  - Leukopenia [Recovered/Resolved]
  - Lumbar vertebral fracture [Not Recovered/Not Resolved]
  - Infusion related reaction [Recovered/Resolved]
